FAERS Safety Report 8956319 (Version 2)
Quarter: 2013Q2

REPORT INFORMATION
  Report Type: Spontaneous
  Country: US (occurrence: US)
  Receive Date: 20121210
  Receipt Date: 20130618
  Transmission Date: 20140414
  Serious: Yes (Other)
  Sender: FDA-Public Use
  Company Number: US-SANOFI-AVENTIS-2012SA088350

PATIENT
  Age: 45 Year
  Sex: Male

DRUGS (3)
  1. LASIX [Suspect]
     Route: 065
  2. AMBRISENTAN [Concomitant]
     Indication: PULMONARY ARTERIAL HYPERTENSION
     Route: 048
     Dates: start: 20120920
  3. AMBRISENTAN [Concomitant]
     Indication: HIV INFECTION
     Route: 048
     Dates: start: 20120920

REACTIONS (2)
  - Syncope [Unknown]
  - Nausea [Unknown]
